FAERS Safety Report 11575428 (Version 1)
Quarter: 2015Q3

REPORT INFORMATION
  Report Type: Spontaneous
  Country: US (occurrence: None)
  Receive Date: 20150929
  Receipt Date: 20150929
  Transmission Date: 20151125
  Serious: Yes (Hospitalization)
  Sender: FDA-Public Use
  Company Number: None

PATIENT
  Age: 64 Year
  Sex: Female

DRUGS (44)
  1. CARVEDILOL 12.5 MG [Suspect]
     Active Substance: CARVEDILOL
     Indication: HYPERTENSION
     Route: 048
  2. ANALGESIC BALM OINTMENT? [Concomitant]
  3. ASPIRIN. [Concomitant]
     Active Substance: ASPIRIN
  4. CALCIUM CITRATE+D [Concomitant]
  5. GLUCAGON. [Concomitant]
     Active Substance: GLUCAGON
  6. INSULIN GLARGINE [Concomitant]
     Active Substance: INSULIN GLARGINE
  7. HERPES ZOSTER VACCINE? [Concomitant]
  8. LORAZEPAM. [Concomitant]
     Active Substance: LORAZEPAM
  9. PROVON LOTION? [Concomitant]
  10. RISEDRONATE [Concomitant]
     Active Substance: RISEDRONATE SODIUM
  11. ACTONEL [Concomitant]
     Active Substance: RISEDRONATE SODIUM
  12. GUAIFENESIN. [Concomitant]
     Active Substance: GUAIFENESIN
  13. MINERALS W/MULTIVITAMIN? [Concomitant]
  14. GAVISCON [Concomitant]
     Active Substance: ALUMINUM HYDROXIDE\MAGNESIUM CARBONATE
  15. ARIPIPRAZOLE. [Concomitant]
     Active Substance: ARIPIPRAZOLE
  16. BIOTENE MOUTH RINSE? [Concomitant]
  17. OXYCODONE/APAP [Concomitant]
     Active Substance: ACETAMINOPHEN\OXYCODONE HYDROCHLORIDE
  18. ZOSTAVAX [Concomitant]
     Active Substance: VARICELLA-ZOSTER VIRUS STRAIN OKA/MERCK LIVE ANTIGEN
  19. DARIFENACIN 15MG ER [Concomitant]
  20. PANTOPRAZOLE [Concomitant]
     Active Substance: PANTOPRAZOLE SODIUM
  21. PNEUMOCOCCAL VACCINE FLU? [Concomitant]
  22. SENNA-S TAB? [Concomitant]
  23. SENSITIVE SKIN SOAP? [Concomitant]
  24. THROAT LOZE [Concomitant]
  25. LIP-ATORVASTATIN [Concomitant]
  26. ACETAMINOPHEN. [Concomitant]
     Active Substance: ACETAMINOPHEN
  27. ALUMINA + MAG.CARB [Concomitant]
  28. FLUPHENAZINE [Concomitant]
     Active Substance: FLUPHENAZINE
  29. LEVOTHYROXINE. [Concomitant]
     Active Substance: LEVOTHYROXINE
  30. KAO [Concomitant]
  31. BISMUTH SUBSALICYLATE. [Concomitant]
     Active Substance: BISMUTH SUBSALICYLATE
  32. MIRTAZAPINE. [Concomitant]
     Active Substance: MIRTAZAPINE
  33. NICOTINE LOZ [Concomitant]
  34. SELENIUM SULFIDE. [Concomitant]
     Active Substance: SELENIUM SULFIDE
  35. DOCUSATE SODIUM. [Concomitant]
     Active Substance: DOCUSATE SODIUM
  36. INSULIN ASPART [Concomitant]
     Active Substance: INSULIN ASPART
  37. LAMOTRIGINE. [Concomitant]
     Active Substance: LAMOTRIGINE
  38. LISINOPRIL. [Concomitant]
     Active Substance: LISINOPRIL
  39. NAPROXEN. [Concomitant]
     Active Substance: NAPROXEN
  40. ALGINIC? [Concomitant]
  41. ATIVAN/LORAZEPAM [Concomitant]
  42. FISH OIL [Concomitant]
     Active Substance: FISH OIL
  43. MILK OF MAGNESIA [Concomitant]
     Active Substance: MAGNESIUM HYDROXIDE
  44. PSYLLIUM SEED PACKET S/F? [Concomitant]

REACTIONS (2)
  - Bradycardia [None]
  - Conduction disorder [None]

NARRATIVE: CASE EVENT DATE: 20150813
